APPROVED DRUG PRODUCT: RISPERIDONE
Active Ingredient: RISPERIDONE
Strength: 1MG/ML
Dosage Form/Route: SOLUTION;ORAL
Application: A079059 | Product #001 | TE Code: AA
Applicant: TRIS PHARMA INC
Approved: Dec 12, 2012 | RLD: No | RS: No | Type: RX